FAERS Safety Report 5906222-2 (Version None)
Quarter: 2008Q4

REPORT INFORMATION
  Report Type: 
  Country: None (occurrence: None)
  Receive Date: 20081002
  Receipt Date: 20080924
  Transmission Date: 20090506
  Serious: Yes (Hospitalization, Other)
  Sender: FDA-Public Use
  Company Number: JP-PFIZER INC-2008066204

PATIENT
  Sex: Female
  Weight: 30 kg

DRUGS (4)
  1. GENOTROPIN [Suspect]
     Indication: HYPOPITUITARISM
     Dosage: TEXT:0.6 TO 0.7 MG-FREQ:DAILY
     Route: 058
     Dates: start: 20041113, end: 20070807
  2. LEVOTHYROXINE SODIUM [Concomitant]
     Indication: HYPOTHYROIDISM
     Dosage: DAILY DOSE:50MCG-FREQ:DAILY
     Route: 048
     Dates: start: 20040227, end: 20080915
  3. CORTRIL [Concomitant]
     Indication: ADRENAL INSUFFICIENCY
     Dosage: DAILY DOSE:.5MG-FREQ:DAILY
     Route: 048
     Dates: start: 20040227, end: 20080915
  4. DESMOPRESSIN ACETATE [Concomitant]
     Dates: start: 20040227

REACTIONS (2)
  - CRANIOPHARYNGIOMA [None]
  - NEOPLASM RECURRENCE [None]
